FAERS Safety Report 17520699 (Version 3)
Quarter: 2020Q1

REPORT INFORMATION
  Report Type: Spontaneous
  Country: US (occurrence: US)
  Receive Date: 20200310
  Receipt Date: 20200313
  Transmission Date: 20200409
  Serious: No
  Sender: FDA-Public Use
  Company Number: US-PFIZER INC-2018258704

PATIENT
  Age: 86 Year
  Sex: Male
  Weight: 77 kg

DRUGS (10)
  1. NORCO [Concomitant]
     Active Substance: ACETAMINOPHEN\HYDROCODONE BITARTRATE
     Indication: PAIN
     Dosage: UNK
  2. LYRICA [Suspect]
     Active Substance: PREGABALIN
     Indication: NEURALGIA
  3. LYRICA [Suspect]
     Active Substance: PREGABALIN
     Indication: INTERVERTEBRAL DISC DEGENERATION
  4. LYRICA [Suspect]
     Active Substance: PREGABALIN
     Indication: LUMBAR RADICULOPATHY
     Dosage: 75 MG, 1X/DAY (ONE CAPSULE DAILY)/(ONE CAPSULE (75 MG DOSE) BY MOUTH EVERY EVENING)
     Route: 048
  5. LYRICA [Suspect]
     Active Substance: PREGABALIN
     Indication: PERONEAL NERVE PALSY
     Dosage: 75 MG, 2X/DAY
     Route: 048
     Dates: start: 20181226
  6. LYRICA [Suspect]
     Active Substance: PREGABALIN
     Indication: SPINAL OSTEOARTHRITIS
  7. LYRICA [Suspect]
     Active Substance: PREGABALIN
     Indication: VERTEBRAL FORAMINAL STENOSIS
  8. LYRICA [Suspect]
     Active Substance: PREGABALIN
     Indication: LUMBOSACRAL RADICULOPATHY
  9. LYRICA [Suspect]
     Active Substance: PREGABALIN
     Indication: PERONEAL NERVE PALSY
  10. CYMBALTA [Concomitant]
     Active Substance: DULOXETINE HYDROCHLORIDE
     Dosage: 60 MG, UNK

REACTIONS (8)
  - Paraesthesia [Unknown]
  - Hypoaesthesia [Unknown]
  - Balance disorder [Unknown]
  - Pain [Not Recovered/Not Resolved]
  - Back pain [Unknown]
  - Herpes zoster [Unknown]
  - Affective disorder [Not Recovered/Not Resolved]
  - Withdrawal syndrome [Not Recovered/Not Resolved]

NARRATIVE: CASE EVENT DATE: 201807
